FAERS Safety Report 11054918 (Version 1)
Quarter: 2015Q2

REPORT INFORMATION
  Report Type: Spontaneous
  Country: US (occurrence: None)
  Receive Date: 20150420
  Receipt Date: 20150420
  Transmission Date: 20150821
  Serious: Yes (Other)
  Sender: FDA-Public Use
  Company Number: ADE15-030

PATIENT
  Age: 83 Year
  Sex: Male
  Weight: 80 kg

DRUGS (1)
  1. HEPARIN SODIUM INJECTION, MDV, 10ML, 1,000UNITS/ML, 25X-SAGENT [Suspect]
     Active Substance: HEPARIN SODIUM
     Indication: CORONARY ARTERY BYPASS
     Route: 042
     Dates: start: 20150330, end: 20150330

REACTIONS (2)
  - Thrombosis [None]
  - Drug effect decreased [None]

NARRATIVE: CASE EVENT DATE: 20150330
